FAERS Safety Report 6469815-2 (Version None)
Quarter: 2009Q4

REPORT INFORMATION
  Report Type: 
  Country: None (occurrence: None)
  Receive Date: 20091203
  Receipt Date: 20080307
  Transmission Date: 20100525
  Serious: Yes (Other)
  Sender: FDA-Public Use
  Company Number: CA-ELI_LILLY_AND_COMPANY-CA200711006107

PATIENT
  Sex: Female

DRUGS (9)
  1. FORTEO [Suspect]
     Indication: OSTEOPOROSIS
     Dosage: 20 UG, DAILY (1/D)
     Route: 058
     Dates: start: 20070110
  2. ACTONEL [Concomitant]
     Dosage: 5 MG, DAILY (1/D)
     Dates: start: 20010323
  3. ACTONEL [Concomitant]
     Dosage: 35 MG, DAILY (1/D)
  4. TRAVATAN [Concomitant]
     Route: 047
  5. CALCIUM CARBONATE [Concomitant]
     Dosage: 500 MG, 3/D
     Dates: start: 19910301
  6. VITAMIN B-12 [Concomitant]
     Dosage: UNK D/F, MONTHLY (1/M)
  7. GLUCOSAMINE [Concomitant]
     Dosage: UNK, DAILY (1/D)
  8. CALCIMAR [Concomitant]
     Dosage: UNK D/F, DAILY (1/D)
     Route: 045
  9. OSTOFORTE [Concomitant]
     Dosage: 50000 IU, WEEKLY (1/W)

REACTIONS (3)
  - ATRIAL FIBRILLATION [None]
  - MITRAL VALVE INCOMPETENCE [None]
  - TRICUSPID VALVE INCOMPETENCE [None]
